FAERS Safety Report 11632984 (Version 2)
Quarter: 2015Q4

REPORT INFORMATION
  Report Type: Spontaneous
  Country: JP (occurrence: JP)
  Receive Date: 20151015
  Receipt Date: 20151021
  Transmission Date: 20160304
  Serious: Yes (Other)
  Sender: FDA-Public Use
  Company Number: JP-PFIZER INC-2015344168

PATIENT
  Age: 80 Year
  Sex: Male

DRUGS (5)
  1. AMIGRAND [Concomitant]
     Indication: CACHEXIA
     Dosage: 500 ML, DAILY
     Route: 041
     Dates: start: 20150930
  2. ZOSYN [Suspect]
     Active Substance: PIPERACILLIN SODIUM\TAZOBACTAM SODIUM
     Indication: PNEUMONIA
     Dosage: 4.5 G, 3X/DAY
     Route: 041
     Dates: start: 20150930, end: 20151001
  3. ZOSYN [Suspect]
     Active Substance: PIPERACILLIN SODIUM\TAZOBACTAM SODIUM
     Indication: PNEUMONIA MYCOPLASMAL
  4. MUCOSOLVAN L [Concomitant]
     Active Substance: AMBROXOL HYDROCHLORIDE
     Indication: PNEUMONIA
     Dosage: 45 MG, DAILY
     Route: 048
     Dates: start: 20150930
  5. NEOLAMIN 3B /00520001/ [Concomitant]
     Indication: CACHEXIA
     Dosage: 10 ML, DAILY
     Route: 041
     Dates: start: 20150930

REACTIONS (1)
  - Urticaria [Recovered/Resolved]

NARRATIVE: CASE EVENT DATE: 20151001
